FAERS Safety Report 23676306 (Version 1)
Quarter: 2024Q1

REPORT INFORMATION
  Report Type: Spontaneous
  Country: FR (occurrence: FR)
  Receive Date: 20240327
  Receipt Date: 20240327
  Transmission Date: 20240409
  Serious: Yes (Other)
  Sender: FDA-Public Use
  Company Number: None

PATIENT
  Age: 76 Year
  Sex: Male

DRUGS (1)
  1. CABOMETYX [Suspect]
     Active Substance: CABOZANTINIB S-MALATE
     Indication: Breast cancer
     Dosage: UNK
     Route: 048
     Dates: start: 20220801, end: 20231009

REACTIONS (1)
  - Subclavian artery dissection [Not Recovered/Not Resolved]

NARRATIVE: CASE EVENT DATE: 20231009
